FAERS Safety Report 8939806 (Version 2)
Quarter: 2013Q2

REPORT INFORMATION
  Report Type: Spontaneous
  Country: DE (occurrence: DE)
  Receive Date: 20121203
  Receipt Date: 20130417
  Transmission Date: 20140414
  Serious: Yes (Hospitalization)
  Sender: FDA-Public Use
  Company Number: DE-BIOGENIDEC-2012BI055992

PATIENT
  Age: 31 Year
  Sex: Female
  Weight: 47 kg

DRUGS (1)
  1. AVONEX [Suspect]
     Indication: MULTIPLE SCLEROSIS
     Route: 030
     Dates: start: 201104

REACTIONS (4)
  - Renal colic [Recovered/Resolved]
  - Ureteric obstruction [Recovered/Resolved with Sequelae]
  - Nephrolithiasis [Unknown]
  - Multiple sclerosis relapse [Recovered/Resolved]
